FAERS Safety Report 7812878-X (Version None)
Quarter: 2011Q4

REPORT INFORMATION
  Report Type: 
  Country: None (occurrence: None)
  Receive Date: 20111013
  Receipt Date: 20111004
  Transmission Date: 20120403
  Serious: Yes (Hospitalization)
  Sender: FDA-Public Use
  Company Number: CA-ASTRAZENECA-2011SE56487

PATIENT
  Age: 64 Year
  Sex: Female

DRUGS (2)
  1. ADALAT [Concomitant]
     Indication: HYPERTENSION
     Route: 048
  2. ATACAND [Suspect]
     Indication: HYPERTENSION
     Route: 048

REACTIONS (4)
  - DYSPNOEA [None]
  - FOOD ALLERGY [None]
  - ATRIAL FIBRILLATION [None]
  - BLOOD PRESSURE DECREASED [None]
